FAERS Safety Report 7016042-6 (Version None)
Quarter: 2010Q3

REPORT INFORMATION
  Report Type: 
  Country: None (occurrence: None)
  Receive Date: 20100927
  Receipt Date: 20100916
  Transmission Date: 20110219
  Serious: Yes (Other)
  Sender: FDA-Public Use
  Company Number: US-JNJFOC-20100408247

PATIENT
  Sex: Female
  Weight: 76.2 kg

DRUGS (8)
  1. REMICADE [Suspect]
     Indication: RHEUMATOID ARTHRITIS
     Route: 042
  2. REMICADE [Suspect]
     Route: 042
  3. REMICADE [Suspect]
     Route: 042
  4. BENADRYL [Concomitant]
     Indication: PREMEDICATION
     Route: 048
  5. ACETAMINOPHEN [Concomitant]
     Indication: PREMEDICATION
     Route: 048
  6. BLOOD PRESSURE MEDICATION NOS [Concomitant]
     Indication: HYPERTENSION
  7. PLAQUENIL [Concomitant]
     Indication: RHEUMATOID ARTHRITIS
  8. THYROID [Concomitant]
     Indication: THYROID DISORDER

REACTIONS (5)
  - ADVERSE EVENT [None]
  - ARTHRALGIA [None]
  - HYPERHIDROSIS [None]
  - SHOULDER OPERATION [None]
  - STOMATITIS [None]
